FAERS Safety Report 17767962 (Version 1)
Quarter: 2020Q2

REPORT INFORMATION
  Report Type: Spontaneous
  Country: ES (occurrence: ES)
  Receive Date: 20200511
  Receipt Date: 20200511
  Transmission Date: 20200714
  Serious: Yes (Hospitalization)
  Sender: FDA-Public Use
  Company Number: ES-BAUSCH-BL-2020-013311

PATIENT
  Age: 48 Year
  Sex: Female

DRUGS (9)
  1. HIDROXICLOROQUINA [Suspect]
     Active Substance: HYDROXYCHLOROQUINE
     Indication: CORONAVIRUS INFECTION
  2. ENOXAPARINA [Suspect]
     Active Substance: ENOXAPARIN
     Indication: EMBOLISM
     Route: 058
     Dates: start: 202004, end: 20200420
  3. TOCILIZUMAB. [Suspect]
     Active Substance: TOCILIZUMAB
     Indication: CORONAVIRUS INFECTION
     Dosage: TOTAL
     Route: 042
     Dates: start: 20200403, end: 20200403
  4. HIDROXICLOROQUINA [Suspect]
     Active Substance: HYDROXYCHLOROQUINE
     Indication: PNEUMONIA
     Route: 048
     Dates: start: 20200403, end: 20200409
  5. AZITROMICINA [Suspect]
     Active Substance: AZITHROMYCIN DIHYDRATE
     Indication: CORONAVIRUS INFECTION
     Route: 042
     Dates: start: 20200403, end: 20200409
  6. DEXAMETASONA [Suspect]
     Active Substance: DEXAMETHASONE
     Indication: CORONAVIRUS INFECTION
     Dosage: 20 MG DAY FOR 6 DAYS FOLLOWED BY 10 MG DAY X 5 DAYS
     Route: 042
     Dates: start: 202004, end: 20200415
  7. TOCILIZUMAB. [Suspect]
     Active Substance: TOCILIZUMAB
     Indication: SEVERE ACUTE RESPIRATORY SYNDROME
  8. DEXAMETASONA [Suspect]
     Active Substance: DEXAMETHASONE
     Indication: SEVERE ACUTE RESPIRATORY SYNDROME
  9. AZITROMICINA [Suspect]
     Active Substance: AZITHROMYCIN DIHYDRATE
     Indication: PNEUMONIA

REACTIONS (3)
  - Gastrointestinal haemorrhage [Recovering/Resolving]
  - Hepatitis acute [Unknown]
  - Blood loss anaemia [Not Recovered/Not Resolved]

NARRATIVE: CASE EVENT DATE: 20200404
